FAERS Safety Report 4398439-6 (Version None)
Quarter: 2004Q3

REPORT INFORMATION
  Report Type: 
  Country: None (occurrence: None)
  Receive Date: 20040712
  Receipt Date: 20040629
  Transmission Date: 20050211
  Serious: Yes (Hospitalization)
  Sender: FDA-Public Use
  Company Number: 200410723EU

PATIENT
  Age: 79 Year
  Sex: Female

DRUGS (5)
  1. ARAVA [Suspect]
     Indication: RHEUMATOID ARTHRITIS
     Dosage: PO
     Route: 048
  2. ARAVA [Suspect]
     Indication: RHEUMATOID ARTHRITIS
     Dosage: 20 MG/DAY PO
     Route: 048
     Dates: end: 20040101
  3. METFORMIN HCL [Concomitant]
  4. GLICLAZIDE [Concomitant]
  5. CHLORTALIDONE [Concomitant]

REACTIONS (6)
  - BILIARY DILATATION [None]
  - C-REACTIVE PROTEIN INCREASED [None]
  - CHOLECYSTECTOMY [None]
  - DILATATION INTRAHEPATIC DUCT ACQUIRED [None]
  - HEPATIC ENZYME INCREASED [None]
  - HEPATIC FUNCTION ABNORMAL [None]
